FAERS Safety Report 9120224 (Version 1)
Quarter: 2013Q1

REPORT INFORMATION
  Report Type: Report from Study
  Country: DK (occurrence: DK)
  Receive Date: 20130226
  Receipt Date: 20130226
  Transmission Date: 20140127
  Serious: Yes (Hospitalization)
  Sender: FDA-Public Use
  Company Number: DK-BRISTOL-MYERS SQUIBB COMPANY-15683154

PATIENT
  Age: 74 Year
  Sex: Male

DRUGS (6)
  1. IPILIMUMAB [Suspect]
     Indication: PROSTATE CANCER
     Dosage: 820 MG TOTAL DOSE
     Route: 042
     Dates: start: 20110125, end: 20110328
  2. RAMIPRIL [Concomitant]
     Dosage: TABLET
     Route: 048
     Dates: start: 20090907
  3. TORVAST [Concomitant]
     Dosage: TABLET
     Route: 048
  4. PREDNISONE [Concomitant]
     Dosage: TABLET
     Route: 048
  5. NORITREN [Concomitant]
     Dosage: TABLET
     Route: 048
  6. HJERDYL [Concomitant]
     Dosage: TABLET
     Route: 048

REACTIONS (5)
  - Diarrhoea [Recovered/Resolved]
  - Vomiting [Recovered/Resolved]
  - Syncope [Not Recovered/Not Resolved]
  - Weight decreased [Not Recovered/Not Resolved]
  - Dehydration [Recovered/Resolved]
